FAERS Safety Report 15499150 (Version 2)
Quarter: 2018Q4

REPORT INFORMATION
  Report Type: Spontaneous
  Country: CN (occurrence: CN)
  Receive Date: 20181015
  Receipt Date: 20181023
  Transmission Date: 20190205
  Serious: Yes (Hospitalization)
  Sender: FDA-Public Use
  Company Number: CN-PFIZER INC-2018415461

PATIENT
  Age: 1 Month
  Sex: Female

DRUGS (1)
  1. MEPEM [Suspect]
     Active Substance: MEROPENEM
     Indication: INFECTION
     Dosage: 0.03 G, 3X/DAY
     Route: 041
     Dates: start: 20180704, end: 20180801

REACTIONS (1)
  - Superinfection [Recovering/Resolving]

NARRATIVE: CASE EVENT DATE: 20180725
